FAERS Safety Report 25542139 (Version 1)
Quarter: 2025Q3

REPORT INFORMATION
  Report Type: Spontaneous
  Country: US (occurrence: US)
  Receive Date: 20250711
  Receipt Date: 20250711
  Transmission Date: 20251021
  Serious: Yes (Other)
  Sender: RECKITT BENCKISER
  Company Number: US-PROD-AS2-212756134-20-25-USA-RB-0013172

PATIENT
  Age: 56 Year
  Sex: Male

DRUGS (2)
  1. MUCINEX FAST-MAX NIGHT TIME COLD AND FLU (ACETAMINOPHEN\DIPHENHYDRAMIN [Suspect]
     Active Substance: ACETAMINOPHEN\DIPHENHYDRAMINE HYDROCHLORIDE\PHENYLEPHRINE HYDROCHLORIDE
     Indication: Asthma
     Dosage: 1 DF, QD (EVERY NIGHT)
     Route: 048
     Dates: start: 20250706
  2. MUCINEX FAST-MAX NIGHT TIME COLD AND FLU (ACETAMINOPHEN\DIPHENHYDRAMIN [Suspect]
     Active Substance: ACETAMINOPHEN\DIPHENHYDRAMINE HYDROCHLORIDE\PHENYLEPHRINE HYDROCHLORIDE
     Indication: Chronic obstructive pulmonary disease

REACTIONS (4)
  - Choking [Not Recovered/Not Resolved]
  - Foreign body in throat [Not Recovered/Not Resolved]
  - Product use in unapproved indication [Not Recovered/Not Resolved]
  - Suspected product contamination [Unknown]

NARRATIVE: CASE EVENT DATE: 20250706
